FAERS Safety Report 16912886 (Version 1)
Quarter: 2019Q4

REPORT INFORMATION
  Report Type: Report from Study
  Country: CO (occurrence: CO)
  Receive Date: 20191014
  Receipt Date: 20191014
  Transmission Date: 20200122
  Serious: Yes (Hospitalization, Other)
  Sender: FDA-Public Use
  Company Number: CO-ROCHE-2405885

PATIENT
  Sex: Female

DRUGS (1)
  1. CELLCEPT [Suspect]
     Active Substance: MYCOPHENOLATE MOFETIL\MYCOPHENOLATE MOFETIL HYDROCHLORIDE
     Indication: PRODUCT USED FOR UNKNOWN INDICATION
     Route: 065

REACTIONS (9)
  - Thermal burn [Unknown]
  - Feeling abnormal [Unknown]
  - Nausea [Unknown]
  - Swelling [Unknown]
  - Apparent death [Unknown]
  - Headache [Unknown]
  - Herpes virus infection [Unknown]
  - Diabetes mellitus [Unknown]
  - Pain in extremity [Unknown]
